FAERS Safety Report 6039768-X (Version None)
Quarter: 2009Q1

REPORT INFORMATION
  Report Type: 
  Country: None (occurrence: None)
  Receive Date: 20090116
  Receipt Date: 20090106
  Transmission Date: 20090719
  Serious: Yes (Death)
  Sender: FDA-Public Use
  Company Number: US-JNJFOC-20080300920

PATIENT
  Sex: Male
  Weight: 102.06 kg

DRUGS (22)
  1. DURAGESIC-100 [Suspect]
     Route: 062
  2. DURAGESIC-100 [Suspect]
     Route: 062
  3. DURAGESIC-100 [Suspect]
     Route: 062
  4. DURAGESIC-100 [Suspect]
     Route: 062
  5. DURAGESIC-100 [Suspect]
     Route: 062
  6. DURAGESIC-100 [Suspect]
     Indication: PAIN
     Route: 062
  7. PENICILLIN V [Concomitant]
  8. GABAPENTIN [Concomitant]
  9. CITALOPRAM HYDROBROMIDE [Concomitant]
  10. TERAZOSIN HYDROCHLORIDE [Concomitant]
  11. DIAZEPAM [Concomitant]
  12. BUPROPION HYDROCHLORIDE [Concomitant]
  13. IBUPROFEN TABLETS [Concomitant]
  14. TEMAZEPAM [Concomitant]
     Route: 048
  15. CLONAZEPAM [Concomitant]
  16. METHYLPREDNISOLONE 16MG TAB [Concomitant]
  17. CYMBALTA [Concomitant]
  18. METOPROLOL TARTRATE [Concomitant]
  19. CLONIDINE [Concomitant]
  20. TRAZODONE HYDROCHLORIDE [Concomitant]
  21. AMOXICILLIN [Concomitant]
  22. AMERGE [Concomitant]

REACTIONS (6)
  - DISTURBANCE IN ATTENTION [None]
  - DRUG TOXICITY [None]
  - INAPPROPRIATE SCHEDULE OF DRUG ADMINISTRATION [None]
  - PRODUCT QUALITY ISSUE [None]
  - SKIN REACTION [None]
  - WRONG TECHNIQUE IN DRUG USAGE PROCESS [None]
